FAERS Safety Report 10595849 (Version 1)
Quarter: 2014Q4

REPORT INFORMATION
  Report Type: Spontaneous
  Country: CN (occurrence: CN)
  Receive Date: 20141120
  Receipt Date: 20141120
  Transmission Date: 20150529
  Serious: Yes (Other)
  Sender: FDA-Public Use
  Company Number: CN-ASTELLAS-2014US017896

PATIENT
  Age: 13 Year
  Sex: Male

DRUGS (1)
  1. PROTOPIC [Suspect]
     Active Substance: TACROLIMUS
     Indication: PIGMENTATION DISORDER
     Dosage: UNK UNK, TWICE DAILY
     Route: 061

REACTIONS (1)
  - Off label use [Unknown]
